FAERS Safety Report 18271325 (Version 1)
Quarter: 2020Q3

REPORT INFORMATION
  Report Type: Spontaneous
  Country: US (occurrence: US)
  Receive Date: 20200916
  Receipt Date: 20200916
  Transmission Date: 20201103
  Serious: No
  Sender: FDA-Public Use
  Company Number: US-ALLERGAN-2019662US

PATIENT
  Age: 29 Year
  Sex: Female

DRUGS (2)
  1. SUPPLEMENTS (UNSPECIFIED) [Concomitant]
     Dosage: UNK
  2. VANIQA [Suspect]
     Active Substance: EFLORNITHINE HYDROCHLORIDE
     Indication: HIRSUTISM
     Dosage: USED PRODUCT ONE TIME END OF MONTH
     Route: 061
     Dates: start: 201910, end: 201910

REACTIONS (4)
  - Skin discomfort [Recovered/Resolved]
  - Erythema [Recovered/Resolved]
  - Skin exfoliation [Recovered/Resolved]
  - Skin burning sensation [Recovered/Resolved]

NARRATIVE: CASE EVENT DATE: 201910
